FAERS Safety Report 16954539 (Version 1)
Quarter: 2019Q4

REPORT INFORMATION
  Report Type: Spontaneous
  Country: US (occurrence: US)
  Receive Date: 20191023
  Receipt Date: 20191023
  Transmission Date: 20200122
  Serious: Yes (Hospitalization)
  Sender: FDA-Public Use
  Company Number: US-BEH-2019108185

PATIENT
  Sex: Female

DRUGS (3)
  1. HUMATE-P [Suspect]
     Active Substance: HUMAN COAGULATION FACTOR VIII/VON WILLEBRAND FACTOR COMPLEX
     Indication: VON WILLEBRAND^S DISEASE
     Dosage: 1550 INTERNATIONAL UNIT, EVERY 12-24 HOURS
     Route: 042
     Dates: start: 20190904
  2. HUMATE-P [Suspect]
     Active Substance: HUMAN COAGULATION FACTOR VIII/VON WILLEBRAND FACTOR COMPLEX
     Indication: VON WILLEBRAND^S DISEASE
     Dosage: 1550 INTERNATIONAL UNIT, EVERY 12-24 HOURS
     Route: 042
     Dates: start: 20190904
  3. DESMOPRESSIN (NC) [Suspect]
     Active Substance: DESMOPRESSIN
     Indication: VON WILLEBRAND^S DISEASE
     Dosage: 1.5 MILLIGRAM PER MILLILITRE,EVERY 24 HRS  PRN
     Route: 045
     Dates: start: 20190904

REACTIONS (3)
  - Tracheostomy malfunction [Unknown]
  - Gingival bleeding [Unknown]
  - Post procedural haemorrhage [Unknown]
